FAERS Safety Report 6939562-9 (Version None)
Quarter: 2010Q3

REPORT INFORMATION
  Report Type: 
  Country: None (occurrence: None)
  Receive Date: 20100824
  Receipt Date: 20100810
  Transmission Date: 20110219
  Serious: Yes (Other)
  Sender: FDA-Public Use
  Company Number: PHHY2010US53229

PATIENT
  Sex: Female

DRUGS (1)
  1. RECLAST [Suspect]

REACTIONS (5)
  - ASTHMA [None]
  - CHEST DISCOMFORT [None]
  - COSTOCHONDRITIS [None]
  - HYPOKINESIA [None]
  - INFLUENZA LIKE ILLNESS [None]
